FAERS Safety Report 15420256 (Version 2)
Quarter: 2018Q4

REPORT INFORMATION
  Report Type: Spontaneous
  Country: US (occurrence: US)
  Receive Date: 20180924
  Receipt Date: 20181015
  Transmission Date: 20190204
  Serious: No
  Sender: FDA-Public Use
  Company Number: US-009507513-1809USA004121

PATIENT
  Age: 20 Year
  Sex: Female
  Weight: 107.48 kg

DRUGS (2)
  1. NEXPLANON [Suspect]
     Active Substance: ETONOGESTREL
     Indication: CONTRACEPTION
     Dosage: 1 IMPLANT, LEFT ARM
     Route: 059
     Dates: start: 20180906, end: 20180906
  2. NEXPLANON [Suspect]
     Active Substance: ETONOGESTREL
     Dosage: 1 IMPLANT, RIGHT ARM
     Route: 059
     Dates: start: 20180906

REACTIONS (6)
  - Device expulsion [Recovered/Resolved]
  - Device deployment issue [Recovered/Resolved]
  - Needle issue [Unknown]
  - No adverse event [Unknown]
  - Device difficult to use [Recovered/Resolved]
  - Complication of device insertion [Recovered/Resolved]

NARRATIVE: CASE EVENT DATE: 20180906
